FAERS Safety Report 20072515 (Version 1)
Quarter: 2021Q4

REPORT INFORMATION
  Report Type: Spontaneous
  Country: US (occurrence: US)
  Receive Date: 20211116
  Receipt Date: 20211116
  Transmission Date: 20220304
  Serious: No
  Sender: FDA-Public Use
  Company Number: US-TEVA-2021-US-1976352

PATIENT
  Age: 43 Year
  Sex: Male

DRUGS (2)
  1. AJOVY [Suspect]
     Active Substance: FREMANEZUMAB-VFRM
     Indication: Vestibular migraine
     Route: 065
  2. AJOVY [Suspect]
     Active Substance: FREMANEZUMAB-VFRM

REACTIONS (10)
  - Neck pain [Unknown]
  - Anxiety [Unknown]
  - Depression [Unknown]
  - Ventricular extrasystoles [Unknown]
  - Palpitations [Unknown]
  - Pain [Unknown]
  - Nightmare [Unknown]
  - Blood pressure increased [Unknown]
  - Vision blurred [Unknown]
  - Injection site rash [Unknown]
